FAERS Safety Report 20691268 (Version 1)
Quarter: 2022Q2

REPORT INFORMATION
  Report Type: Report from Study
  Country: US (occurrence: US)
  Receive Date: 20220408
  Receipt Date: 20220408
  Transmission Date: 20220721
  Serious: Yes (Hospitalization, Other)
  Sender: FDA-Public Use
  Company Number: US-INCYTE CORPORATION-2022IN003346

PATIENT

DRUGS (1)
  1. JAKAFI [Suspect]
     Active Substance: RUXOLITINIB
     Indication: Polycythaemia vera
     Dosage: UNK
     Route: 065

REACTIONS (4)
  - Transient ischaemic attack [Not Recovered/Not Resolved]
  - Platelet count increased [Not Recovered/Not Resolved]
  - Hemiparesis [Not Recovered/Not Resolved]
  - Aphasia [Not Recovered/Not Resolved]
